FAERS Safety Report 18912991 (Version 3)
Quarter: 2021Q2

REPORT INFORMATION
  Report Type: Report from Study
  Country: US (occurrence: US)
  Receive Date: 20210219
  Receipt Date: 20210408
  Transmission Date: 20210717
  Serious: Yes (Hospitalization)
  Sender: FDA-Public Use
  Company Number: US-B.I. PHARMACEUTICALS,INC./RIDGEFIELD-2020-BI-068093

PATIENT
  Age: 76 Year
  Sex: Female

DRUGS (1)
  1. OFEV [Suspect]
     Active Substance: NINTEDANIB
     Indication: PULMONARY FIBROSIS
     Dosage: TAKE ONE CAPSULE BY MOUTH TWICE DAILY
     Route: 048
     Dates: end: 202102

REACTIONS (9)
  - Anaemia [Unknown]
  - Haemoglobin abnormal [Unknown]
  - Vomiting [Unknown]
  - Constipation [Unknown]
  - Ulcer haemorrhage [Recovered/Resolved]
  - Melaena [Unknown]
  - Anxiety [Unknown]
  - Faeces discoloured [Recovered/Resolved]
  - Constipation [Unknown]

NARRATIVE: CASE EVENT DATE: 20201110
